FAERS Safety Report 11310269 (Version 2)
Quarter: 2017Q1

REPORT INFORMATION
  Report Type: Spontaneous
  Country: JP (occurrence: JP)
  Receive Date: 20150724
  Receipt Date: 20170125
  Transmission Date: 20170428
  Serious: Yes (Death, Other)
  Sender: FDA-Public Use
  Company Number: JP-MALLINCKRODT-T201503560

PATIENT
  Age: 55 Year
  Sex: Male
  Weight: 63 kg

DRUGS (14)
  1. DECADRON [Concomitant]
     Active Substance: DEXAMETHASONE
     Indication: ANALGESIC THERAPY
     Dosage: 3 MG
     Route: 048
     Dates: start: 20141227, end: 20141231
  2. FUROSEMIDE. [Concomitant]
     Active Substance: FUROSEMIDE
     Dosage: 40 MG
     Route: 048
     Dates: end: 20141231
  3. MORPHINE HYDROCHLORIDE HYDRATE [Concomitant]
     Active Substance: MORPHINE HYDROCHLORIDE
     Indication: ANALGESIC THERAPY
     Dosage: 10-30 MG PRN
     Route: 048
     Dates: start: 20141223
  4. CALCICOL [Concomitant]
     Active Substance: CALCIUM GLUCONATE
     Dosage: 425 MG
     Route: 051
     Dates: start: 20141229, end: 20141230
  5. METHADONE [Suspect]
     Active Substance: METHADONE HYDROCHLORIDE
     Indication: CANCER PAIN
     Dosage: 5 MG; 10 MG DAILY DOSE
     Route: 048
     Dates: start: 20141224, end: 20141231
  6. PANTETHINE [Concomitant]
     Active Substance: PANTETHINE
     Dosage: 300 MG
     Route: 048
     Dates: end: 20141231
  7. HUSTAZOL [Concomitant]
     Active Substance: CLOPERASTINE
     Dosage: 30 MG
     Route: 048
     Dates: end: 20141231
  8. LYRICA [Concomitant]
     Active Substance: PREGABALIN
     Indication: ANALGESIC THERAPY
     Dosage: 150 MG
     Route: 048
     Dates: end: 20141225
  9. TRAZODONE [Concomitant]
     Active Substance: TRAZODONE HYDROCHLORIDE
     Indication: ANALGESIC THERAPY
     Dosage: 25 MG
     Route: 048
     Dates: end: 20141228
  10. CALONAL [Concomitant]
     Active Substance: ACETAMINOPHEN
     Indication: ANALGESIC THERAPY
     Dosage: 2700 MG
     Route: 048
     Dates: end: 20141231
  11. OXIFAST [Concomitant]
     Active Substance: OXYCODONE
     Indication: ANALGESIC THERAPY
     Dosage: 100 MG
     Route: 051
     Dates: start: 20141231, end: 20141231
  12. MAGMITT [Concomitant]
     Active Substance: MAGNESIUM OXIDE
     Dosage: 990 MG
     Route: 048
     Dates: end: 20141231
  13. NEUROTROPIN [Concomitant]
     Active Substance: NEUROTROPIN
     Indication: ANALGESIC THERAPY
     Dosage: 3.6 DF
     Route: 051
     Dates: end: 20141227
  14. OXYCONTIN [Concomitant]
     Active Substance: OXYCODONE HYDROCHLORIDE
     Indication: ANALGESIC THERAPY
     Dosage: 30 MG
     Route: 048
     Dates: end: 20141231

REACTIONS (2)
  - Delirium [Not Recovered/Not Resolved]
  - Colon cancer recurrent [Fatal]

NARRATIVE: CASE EVENT DATE: 20141227
